FAERS Safety Report 6253594-8 (Version None)
Quarter: 2009Q2

REPORT INFORMATION
  Report Type: 
  Country: None (occurrence: None)
  Receive Date: 20090630
  Receipt Date: 20090617
  Transmission Date: 20091009
  Serious: Yes (Hospitalization)
  Sender: FDA-Public Use
  Company Number: 2009AL004126

PATIENT
  Age: 43 Year
  Sex: Female

DRUGS (14)
  1. TEMAZEPAM [Suspect]
     Indication: DRUG USE FOR UNKNOWN INDICATION
     Dosage: 30 MG; HS
  2. DIAZEPAM [Suspect]
     Indication: DRUG USE FOR UNKNOWN INDICATION
     Dosage: 5 MG; TID
  3. OXYCODONE AND ACETAMINOPHEN [Suspect]
     Indication: DRUG USE FOR UNKNOWN INDICATION
     Dosage: Q4H
  4. ALPRAZOLAM [Suspect]
     Indication: DRUG USE FOR UNKNOWN INDICATION
     Dosage: 1 MG; QID
  5. CARBIDOPA + LEVODOPA [Suspect]
     Indication: DRUG USE FOR UNKNOWN INDICATION
     Dosage: QD
  6. FOLIC ACID [Concomitant]
  7. GEODON [Concomitant]
  8. METHADONE HCL [Concomitant]
  9. SEROQUEL [Concomitant]
  10. TOPAMAX [Concomitant]
  11. SYNTHROID [Concomitant]
  12. POTASSIUM GLUCONATE [Concomitant]
  13. VITAMIN B1 TAB [Concomitant]
  14. MULTI-VITAMINS [Concomitant]

REACTIONS (1)
  - PNEUMONIA [None]
